FAERS Safety Report 6473789-8 (Version None)
Quarter: 2009Q4

REPORT INFORMATION
  Report Type: 
  Country: None (occurrence: None)
  Receive Date: 20091204
  Receipt Date: 20091127
  Transmission Date: 20100525
  Serious: Yes (Hospitalization, Other)
  Sender: FDA-Public Use
  Company Number: PT-ROCHE-665666

PATIENT
  Sex: Female
  Weight: 60 kg

DRUGS (4)
  1. XELODA [Suspect]
     Indication: COLON CANCER METASTATIC
     Route: 048
  2. XELODA [Suspect]
     Route: 048
     Dates: start: 20090526, end: 20091022
  3. AVASTIN [Suspect]
     Indication: COLON CANCER METASTATIC
     Route: 042
     Dates: start: 20090526, end: 20091008
  4. ALPRAZOLAM [Concomitant]
     Indication: ANXIETY
     Dosage: REPORTED DOSE: 0.25 MG
     Route: 048

REACTIONS (2)
  - DYSPEPSIA [None]
  - PANCREATITIS ACUTE [None]
